FAERS Safety Report 8676361 (Version 3)
Quarter: 2012Q4

REPORT INFORMATION
  Report Type: 
  Country: US (occurrence: US)
  Receive Date: 20120720
  Receipt Date: 20120921
  Transmission Date: 20130627
  Serious: Yes (Other)
  Sender: FDA-Public Use
  Company Number: US-PFIZER INC-2012172076

PATIENT
  Age: 31 Year
  Sex: Female
  Weight: 118 kg

DRUGS (10)
  1. EPIPEN [Suspect]
     Indication: HYPERSENSITIVITY
     Dosage: UNK
     Dates: start: 20120710
  2. BUSPIRONE [Concomitant]
     Indication: DEPRESSION
     Dosage: 5 mg, 3x/day
     Route: 048
  3. BUSPIRONE [Concomitant]
     Indication: ANXIETY
  4. FLUOXETINE [Concomitant]
     Indication: DEPRESSION
     Dosage: 40 mg, 2x/day
     Route: 048
  5. FLUOXETINE [Concomitant]
     Indication: ANXIETY
  6. METFORMIN [Concomitant]
     Indication: POLYCYSTIC OVARIES
     Dosage: 500 mg, 2x/day
     Route: 048
  7. AMBIEN [Concomitant]
     Indication: INSOMNIA
     Dosage: 10 mg, 1x/day
     Route: 048
  8. ZONISAMIDE [Concomitant]
     Dosage: 100 mg, 1x/day
     Route: 048
  9. CALCIUM [Concomitant]
     Dosage: UNK QD
     Route: 048
  10. MAGNESIUM [Concomitant]
     Dosage: UNK QD
     Route: 048

REACTIONS (2)
  - Drug ineffective [Recovered/Resolved]
  - Needle issue [Unknown]
